FAERS Safety Report 10056922 (Version 1)
Quarter: 2014Q2

REPORT INFORMATION
  Report Type: Spontaneous
  Country: US (occurrence: US)
  Receive Date: 20140403
  Receipt Date: 20140403
  Transmission Date: 20141212
  Serious: Yes (Other)
  Sender: FDA-Public Use
  Company Number: US-PFIZER INC-2014093069

PATIENT
  Age: 63 Year
  Sex: Female
  Weight: 95.24 kg

DRUGS (1)
  1. NORVASC [Suspect]
     Indication: BLOOD PRESSURE ABNORMAL
     Dosage: 10 MG, DAILY
     Dates: end: 2014

REACTIONS (2)
  - Breast cancer female [Recovered/Resolved]
  - Lung disorder [Recovered/Resolved]
